FAERS Safety Report 7212864-7 (Version None)
Quarter: 2011Q1

REPORT INFORMATION
  Report Type: 
  Country: None (occurrence: None)
  Receive Date: 20110106
  Receipt Date: 20101227
  Transmission Date: 20110831
  Serious: Yes (Hospitalization)
  Sender: FDA-Public Use
  Company Number: PHHY2010US88840

PATIENT
  Sex: Male

DRUGS (1)
  1. EXJADE [Suspect]
     Indication: NEOPLASM
     Dosage: 1500 MG, QD
     Route: 048
     Dates: start: 20090401

REACTIONS (12)
  - GASTROINTESTINAL HAEMORRHAGE [None]
  - ARTHRALGIA [None]
  - ARTHRITIS [None]
  - ULCER [None]
  - COLITIS [None]
  - ISCHAEMIA [None]
  - INFECTION [None]
  - ANAEMIA [None]
  - STAPHYLOCOCCAL BACTERAEMIA [None]
  - CHILLS [None]
  - DYSPNOEA [None]
  - PYREXIA [None]
